FAERS Safety Report 19695274 (Version 1)
Quarter: 2021Q3

REPORT INFORMATION
  Report Type: Report from Study
  Country: US (occurrence: US)
  Receive Date: 20210812
  Receipt Date: 20210812
  Transmission Date: 20211014
  Serious: Yes (Other)
  Sender: FDA-Public Use
  Company Number: US-JNJFOC-20210821043

PATIENT
  Sex: Female
  Weight: 48.2 kg

DRUGS (1)
  1. SELEXIPAG [Suspect]
     Active Substance: SELEXIPAG
     Indication: PULMONARY HYPERTENSION
     Route: 048

REACTIONS (5)
  - Palpitations [Unknown]
  - Pulmonary arterial pressure increased [Unknown]
  - Joint stiffness [Unknown]
  - Dyspnoea [Unknown]
  - Flushing [Unknown]
